FAERS Safety Report 9072392 (Version 2)
Quarter: 2013Q1

REPORT INFORMATION
  Report Type: Spontaneous
  Country: US (occurrence: US)
  Receive Date: 20130207
  Receipt Date: 20130225
  Transmission Date: 20140127
  Serious: Yes (Other)
  Sender: FDA-Public Use
  Company Number: US-PFIZER INC-2013045118

PATIENT
  Age: 56 Year
  Sex: Female
  Weight: 79 kg

DRUGS (1)
  1. PREMARIN VAGINAL CREAM [Suspect]
     Indication: ATROPHIC VULVOVAGINITIS
     Dosage: 0.5 G, 2X/WEEK
     Route: 067
     Dates: start: 2006, end: 20130128

REACTIONS (9)
  - Thyroid function test abnormal [Unknown]
  - Weight increased [Unknown]
  - Blood creatinine increased [Unknown]
  - Blood sodium abnormal [Unknown]
  - Blood calcium abnormal [Unknown]
  - Hepatic enzyme increased [Unknown]
  - Blood iron decreased [Unknown]
  - Vitamin D decreased [Unknown]
  - Drug ineffective [Not Recovered/Not Resolved]
